FAERS Safety Report 4578676-8 (Version None)
Quarter: 2005Q1

REPORT INFORMATION
  Report Type: 
  Country: None (occurrence: None)
  Receive Date: 20050209
  Receipt Date: 20050209
  Transmission Date: 20050727
  Serious: Yes (Disabling)
  Sender: FDA-Public Use
  Company Number: None

PATIENT
  Age: 35 Year
  Sex: Male
  Weight: 121.564 kg

DRUGS (9)
  1. QUETIAPINE   200 MG   ASTRA ZENECA [Suspect]
     Indication: MAJOR DEPRESSION
     Dosage: SEE IMAGE
     Route: 048
     Dates: start: 20040916, end: 20041105
  2. ALBUTEROL IHHALER [Concomitant]
  3. LEXAPRO [Concomitant]
  4. ENALAPRIL MALEATE [Concomitant]
  5. XANAX [Concomitant]
  6. NICOTINE [Concomitant]
  7. IBUPROFEN [Concomitant]
  8. SEROQUEL [Concomitant]
  9. KEFLEX [Concomitant]

REACTIONS (7)
  - ASTHENIA [None]
  - BLOOD PRESSURE SYSTOLIC INCREASED [None]
  - CHEST PAIN [None]
  - DIABETES MELLITUS [None]
  - NAUSEA [None]
  - PAIN [None]
  - SLEEP DISORDER [None]
